FAERS Safety Report 7491563-0 (Version None)
Quarter: 2011Q2

REPORT INFORMATION
  Report Type: 
  Country: None (occurrence: None)
  Receive Date: 20110519
  Receipt Date: 20110509
  Transmission Date: 20111010
  Serious: Yes (Other)
  Sender: FDA-Public Use
  Company Number: US-JNJFOC-20110407362

PATIENT
  Age: 58 Year
  Sex: Female

DRUGS (11)
  1. ENBREL [Suspect]
     Indication: PSORIASIS
     Dates: end: 20110303
  2. ALLEGRA [Concomitant]
  3. AMOXICILLIN [Suspect]
     Indication: ILL-DEFINED DISORDER
  4. ALBUTEROL [Concomitant]
     Indication: ILL-DEFINED DISORDER
  5. ADVAIR DISKUS 100/50 [Concomitant]
  6. XANAX [Concomitant]
  7. EFFEXOR [Concomitant]
  8. STELARA [Suspect]
     Indication: PSORIASIS
     Route: 058
     Dates: start: 20110314
  9. GLIPIZIDE [Concomitant]
  10. METFORMIN HCL [Concomitant]
  11. LISINOPRIL [Concomitant]

REACTIONS (1)
  - VASCULITIS [None]
